FAERS Safety Report 7641294-9 (Version None)
Quarter: 2011Q3

REPORT INFORMATION
  Report Type: 
  Country: None (occurrence: None)
  Receive Date: 20110728
  Receipt Date: 20110712
  Transmission Date: 20111222
  Serious: Yes (Death)
  Sender: FDA-Public Use
  Company Number: GR-PFIZER INC-2011170485

PATIENT
  Age: 68 Year
  Sex: Male

DRUGS (3)
  1. AMPHOTERICIN B [Suspect]
     Indication: ASPERGILLOSIS
     Dosage: 3 MG/KG, 1X/DAY
  2. VORICONAZOLE [Suspect]
     Dosage: 4 MG/KG, 2X/DAY
  3. VORICONAZOLE [Suspect]
     Indication: ASPERGILLOSIS
     Dosage: 6 MG/KG, 2X/DAY

REACTIONS (2)
  - DEATH [None]
  - DRUG INEFFECTIVE [None]
